FAERS Safety Report 6342423-X (Version None)
Quarter: 2009Q3

REPORT INFORMATION
  Report Type: 
  Country: None (occurrence: None)
  Receive Date: 20090908
  Receipt Date: 20010327
  Transmission Date: 20100115
  Serious: No
  Sender: FDA-Public Use
  Company Number: CN-ROCHE-257683

PATIENT
  Sex: Female
  Weight: 54 kg

DRUGS (2)
  1. OSELTAMIVIR [Suspect]
     Indication: INFLUENZA
     Route: 048
     Dates: start: 20010226, end: 20010302
  2. PARACETAMOL [Concomitant]
     Dosage: TAKEN AT 11.30, 16.30 AND 21.30.
     Route: 048
     Dates: start: 20010226, end: 20010226

REACTIONS (2)
  - DRUG EXPOSURE DURING PREGNANCY [None]
  - PREGNANCY [None]
